FAERS Safety Report 23750834 (Version 1)
Quarter: 2024Q2

REPORT INFORMATION
  Report Type: Spontaneous
  Country: BE (occurrence: BE)
  Receive Date: 20240417
  Receipt Date: 20240417
  Transmission Date: 20240716
  Serious: Yes (Other)
  Sender: FDA-Public Use
  Company Number: BE-MLMSERVICE-20240327-4919411-1

PATIENT
  Age: 75 Year
  Sex: Male

DRUGS (7)
  1. PANTOPRAZOLE [Suspect]
     Active Substance: PANTOPRAZOLE
     Indication: Product used for unknown indication
     Dosage: 20 MILLIGRAM, ONCE A DAY
     Route: 065
     Dates: start: 2022
  2. VITAMIN C [Suspect]
     Active Substance: ASCORBIC ACID
     Indication: Vitamin supplementation
     Dosage: UNK (ASCORBIC ACID)
     Route: 065
     Dates: start: 2022
  3. VITAMIN C [Suspect]
     Active Substance: ASCORBIC ACID
     Indication: Supplementation therapy
  4. PANCREATIN [Concomitant]
     Active Substance: PANCRELIPASE
     Indication: Cholangiocarcinoma
     Dosage: 420 MILLIGRAM, 3 TIMES A DAY
     Route: 065
     Dates: start: 2022
  5. INDAPAMIDE\PERINDOPRIL [Concomitant]
     Active Substance: INDAPAMIDE\PERINDOPRIL
     Indication: Essential hypertension
     Dosage: 1 DOSAGE FORM, ONCE A DAY (2.5 MG/0.625 MG , QD)
     Route: 065
     Dates: start: 2022
  6. INDAPAMIDE\PERINDOPRIL [Concomitant]
     Active Substance: INDAPAMIDE\PERINDOPRIL
     Indication: Hypertension
  7. CHOLECALCIFEROL [Concomitant]
     Active Substance: CHOLECALCIFEROL
     Indication: Product used for unknown indication
     Dosage: 25 INTERNATIONAL UNIT, EVERY WEEK (2500 DOSAGE FORM)
     Route: 065
     Dates: start: 2022

REACTIONS (3)
  - Tubulointerstitial nephritis [Unknown]
  - Renal tubular necrosis [Unknown]
  - Crystal nephropathy [Unknown]

NARRATIVE: CASE EVENT DATE: 20220101
